FAERS Safety Report 9825850 (Version 1)
Quarter: 2013Q4

REPORT INFORMATION
  Report Type: Spontaneous
  Country: US (occurrence: None)
  Receive Date: 20131028
  Receipt Date: 20131028
  Transmission Date: 20140711
  Serious: Yes (Hospitalization)
  Sender: FDA-Public Use
  Company Number: 2013US001835

PATIENT
  Age: 69 Year
  Sex: Female
  Weight: 93 kg

DRUGS (2)
  1. ICLUSIG [Suspect]
     Indication: ACUTE LYMPHOCYTIC LEUKAEMIA
     Route: 048
     Dates: start: 20130329, end: 20130329
  2. HUMALOG (INSULIN LISPRO) [Concomitant]

REACTIONS (4)
  - Blood glucose increased [None]
  - Dizziness [None]
  - Asthenia [None]
  - Joint swelling [None]
